FAERS Safety Report 5192332-7 (Version None)
Quarter: 2006Q4

REPORT INFORMATION
  Report Type: 
  Country: None (occurrence: None)
  Receive Date: 20061227
  Receipt Date: 20061219
  Transmission Date: 20070319
  Serious: Yes (Other)
  Sender: FDA-Public Use
  Company Number: US-PFIZER INC-2006154959

PATIENT
  Sex: Female
  Weight: 86.2 kg

DRUGS (16)
  1. CELEBREX [Suspect]
  2. PREDNISONE TAB [Suspect]
     Indication: CHRONIC OBSTRUCTIVE PULMONARY DISEASE
  3. PREDNISONE TAB [Suspect]
     Indication: RASH
  4. PRIMIDONE [Concomitant]
  5. PREMARIN [Concomitant]
  6. BUSPAR [Concomitant]
  7. ZYRTEC [Concomitant]
  8. DUONEB [Concomitant]
  9. FLOVENT [Concomitant]
  10. ADVAIR DISKUS 100/50 [Concomitant]
  11. FLONASE [Concomitant]
  12. CENTRUM SILVER [Concomitant]
  13. CALCIUM [Concomitant]
  14. MAGNESIUM [Concomitant]
  15. CALCIUM MAGNESIUM ZINC [Concomitant]
  16. COENZYME Q10 [Concomitant]

REACTIONS (3)
  - CHRONIC OBSTRUCTIVE PULMONARY DISEASE [None]
  - RASH [None]
  - WEIGHT INCREASED [None]
